FAERS Safety Report 12675682 (Version 1)
Quarter: 2016Q3

REPORT INFORMATION
  Report Type: Spontaneous
  Country: US (occurrence: US)
  Receive Date: 20160823
  Receipt Date: 20160823
  Transmission Date: 20161109
  Serious: No
  Sender: FDA-Public Use
  Company Number: US-JAZZ-2016-US-006509

PATIENT
  Sex: Male

DRUGS (20)
  1. LUNESTA [Concomitant]
     Active Substance: ESZOPICLONE
  2. MIRTAZAPINE. [Concomitant]
     Active Substance: MIRTAZAPINE
  3. VITAMIN D [Concomitant]
     Active Substance: CHOLECALCIFEROL
  4. XYREM [Suspect]
     Active Substance: SODIUM OXYBATE
     Dosage: 4.5 G, BID
     Route: 048
     Dates: start: 201511
  5. MELOXICAM. [Concomitant]
     Active Substance: MELOXICAM
  6. NASONEX [Concomitant]
     Active Substance: MOMETASONE FUROATE
  7. XYREM [Suspect]
     Active Substance: SODIUM OXYBATE
     Indication: NARCOLEPSY
     Dosage: 2.25 G, BID
     Route: 048
     Dates: start: 201510, end: 201510
  8. XYREM [Suspect]
     Active Substance: SODIUM OXYBATE
     Dosage: DOSE ADJUSTMENTS
     Route: 048
     Dates: start: 2015, end: 2015
  9. FINASTERIDE. [Concomitant]
     Active Substance: FINASTERIDE
  10. LOVASTATIN. [Concomitant]
     Active Substance: LOVASTATIN
  11. MORPHINE SULFATE IR [Concomitant]
     Active Substance: MORPHINE SULFATE
  12. PROAIR HFA [Concomitant]
     Active Substance: ALBUTEROL SULFATE
  13. MULTIVITAMIN [Concomitant]
     Active Substance: VITAMINS
  14. ASMANEX [Concomitant]
     Active Substance: MOMETASONE FUROATE
  15. BACLOFEN. [Concomitant]
     Active Substance: BACLOFEN
  16. FOLIC ACID. [Concomitant]
     Active Substance: FOLIC ACID
  17. ASPIRIN. [Concomitant]
     Active Substance: ASPIRIN
  18. PROVIGIL [Concomitant]
     Active Substance: MODAFINIL
  19. ALLEGRA ALLERGY [Concomitant]
     Active Substance: FEXOFENADINE HYDROCHLORIDE
  20. OXYCODONE HYDROCHLORIDE. [Concomitant]
     Active Substance: OXYCODONE HYDROCHLORIDE

REACTIONS (1)
  - Poor quality sleep [Not Recovered/Not Resolved]
